FAERS Safety Report 5643243-1 (Version None)
Quarter: 2008Q1

REPORT INFORMATION
  Report Type: 
  Country: None (occurrence: None)
  Receive Date: 20080226
  Receipt Date: 20080215
  Transmission Date: 20080703
  Serious: Yes (Death)
  Sender: FDA-Public Use
  Company Number: GXKR2008TW01719

PATIENT
  Age: 72 Year
  Sex: Female
  Weight: 73 kg

DRUGS (5)
  1. AMIODARONE HCL [Suspect]
     Indication: ATRIAL FIBRILLATION
     Dosage: TOTAL DOSE 2.55 G, INTRAVENOUS; 1MG/MIN, INTRAVENOUS
     Route: 042
     Dates: start: 20060410, end: 20060413
  2. AMIODARONE HCL [Suspect]
     Indication: ATRIAL FIBRILLATION
     Dosage: TOTAL DOSE 2.55 G, INTRAVENOUS; 1MG/MIN, INTRAVENOUS
     Route: 042
     Dates: start: 20060401
  3. ACETYLSALICYLIC ACID SRT [Concomitant]
  4. PENTOXIFYLLINE [Concomitant]
  5. INSULIN (INSULIN) [Concomitant]

REACTIONS (8)
  - ASCITES [None]
  - COMA HEPATIC [None]
  - HEPATIC ENZYME INCREASED [None]
  - HEPATOCELLULAR INJURY [None]
  - JAUNDICE [None]
  - LIVER DISORDER [None]
  - OLIGURIA [None]
  - RENAL FAILURE ACUTE [None]
